FAERS Safety Report 17000742 (Version 1)
Quarter: 2019Q4

REPORT INFORMATION
  Report Type: Spontaneous
  Country: CA (occurrence: CA)
  Receive Date: 20191106
  Receipt Date: 20191106
  Transmission Date: 20200122
  Serious: Yes (Other)
  Sender: FDA-Public Use
  Company Number: CA-PFIZER INC-2019473363

PATIENT
  Age: 60 Year
  Sex: Female

DRUGS (1)
  1. DOCETAXEL. [Suspect]
     Active Substance: DOCETAXEL
     Dosage: 133 MG, UNK
     Route: 065

REACTIONS (6)
  - Infusion related reaction [Unknown]
  - Visual impairment [Unknown]
  - Flushing [Unknown]
  - Product lot number issue [Unknown]
  - Rash [Unknown]
  - Nausea [Unknown]
